FAERS Safety Report 7237614-X (Version None)
Quarter: 2011Q1

REPORT INFORMATION
  Report Type: 
  Country: None (occurrence: None)
  Receive Date: 20110121
  Receipt Date: 20110112
  Transmission Date: 20110831
  Serious: Yes (Hospitalization)
  Sender: FDA-Public Use
  Company Number: PHFR2011GB00525

PATIENT
  Sex: Male

DRUGS (3)
  1. SYMBICORT [Concomitant]
     Indication: CHRONIC OBSTRUCTIVE PULMONARY DISEASE
     Dosage: 2 PUFFS DAILY
     Dates: start: 20101118
  2. CLOZARIL [Suspect]
     Indication: SCHIZOPHRENIA
     Dosage: 300 MG, QD
     Dates: start: 20101102, end: 20110101
  3. ALBUTEROL [Concomitant]
     Indication: CHRONIC OBSTRUCTIVE PULMONARY DISEASE
     Dosage: 2 PUFFS DAILY
     Dates: start: 20101118

REACTIONS (5)
  - BLOOD CREATINE PHOSPHOKINASE INCREASED [None]
  - INFLUENZA LIKE ILLNESS [None]
  - H1N1 INFLUENZA [None]
  - PYREXIA [None]
  - CHRONIC OBSTRUCTIVE PULMONARY DISEASE [None]
